FAERS Safety Report 5907074-7 (Version None)
Quarter: 2008Q4

REPORT INFORMATION
  Report Type: 
  Country: None (occurrence: None)
  Receive Date: 20081003
  Receipt Date: 20080924
  Transmission Date: 20090506
  Serious: Yes (Other)
  Sender: FDA-Public Use
  Company Number: US-WYE-H06119008

PATIENT
  Age: 26 Year
  Sex: Female
  Weight: 62.65 kg

DRUGS (2)
  1. ROBITUSSIN COUGH COLD AND FLU NIGHTTIME [Suspect]
     Indication: COUGH
     Dosage: 1 DOSE (ONE CAPFUL) AS NEEDED
     Route: 048
     Dates: end: 20080923
  2. ROBITUSSIN COUGH COLD AND FLU NIGHTTIME [Suspect]
     Indication: NASOPHARYNGITIS

REACTIONS (4)
  - DYSPNOEA [None]
  - HYPERSENSITIVITY [None]
  - PRURITUS [None]
  - WHEEZING [None]
